FAERS Safety Report 5358414-1 (Version None)
Quarter: 2007Q2

REPORT INFORMATION
  Report Type: 
  Country: None (occurrence: None)
  Receive Date: 20070615
  Receipt Date: 20070607
  Transmission Date: 20071010
  Serious: Yes (Other)
  Sender: FDA-Public Use
  Company Number: PHEH2007US05229

PATIENT
  Age: 42 Year
  Sex: Female
  Weight: 61.224 kg

DRUGS (6)
  1. ZELNORM [Suspect]
     Indication: IRRITABLE BOWEL SYNDROME
     Dosage: 6 MG, BID
     Route: 048
     Dates: start: 20040101, end: 20070410
  2. MIRALAX [Concomitant]
  3. SINGULAIR [Concomitant]
  4. NASACORT [Concomitant]
     Dosage: UNK, QD
  5. MULTIVITAMIN [Concomitant]
     Route: 048
  6. MILK OF MAGNESIA [Concomitant]
     Indication: CONSTIPATION
     Dosage: UNK, PRN
     Route: 048
     Dates: start: 20040204

REACTIONS (10)
  - ABDOMINAL PAIN [None]
  - ADENOMATOUS POLYPOSIS COLI [None]
  - CHANGE OF BOWEL HABIT [None]
  - CHEST PAIN [None]
  - COLONOSCOPY [None]
  - CONSTIPATION [None]
  - DIARRHOEA [None]
  - HAEMORRHOIDS [None]
  - MELAENA [None]
  - POLYPECTOMY [None]
